FAERS Safety Report 8324931 (Version 5)
Quarter: 2012Q4

REPORT INFORMATION
  Report Type: 
  Country: US (occurrence: US)
  Receive Date: 20120106
  Receipt Date: 20121004
  Transmission Date: 20130627
  Serious: Yes (Hospitalization, Other)
  Sender: FDA-Public Use
  Company Number: US-BAYER-2012-000103

PATIENT
  Age: 48 Year
  Sex: Female
  Weight: 54.42 kg

DRUGS (11)
  1. YAZ [Suspect]
     Indication: CONTRACEPTION
     Dates: start: 20060831, end: 20090824
  2. METOPROLOL [Concomitant]
     Dosage: 50 mg, UNK
     Route: 048
  3. ALPRAZOLAM [Concomitant]
     Dosage: 0.5 mg, UNK
     Route: 048
  4. ZOLPIDEM TARTRATE [Concomitant]
     Dosage: 10 mg, UNK
     Route: 048
  5. CYMBALTA [Concomitant]
     Indication: DEPRESSION
     Dosage: 30 mg, UNK
     Route: 048
  6. LYRICA [Concomitant]
     Dosage: 150 mg, UNK
     Route: 048
  7. PROVIGIL [Concomitant]
     Dosage: 200 mg, UNK
     Route: 048
  8. VERAPAMIL [Concomitant]
     Dosage: 240 mg, UNK
     Route: 048
  9. DARVOCET [Concomitant]
     Indication: MIGRAINE
     Dosage: 4 tablets daily
     Route: 048
     Dates: start: 20090306
  10. DIOVAN [Concomitant]
     Dosage: UNK
     Dates: start: 20090306
  11. CLONIDINE [Concomitant]
     Indication: HYPERTENSION
     Dosage: UNK
     Route: 061
     Dates: start: 20090306

REACTIONS (6)
  - Cerebrovascular accident [None]
  - Transient ischaemic attack [None]
  - Paresis [None]
  - Vision blurred [None]
  - Fibromyalgia [None]
  - Migraine with aura [None]
